FAERS Safety Report 11183670 (Version 1)
Quarter: 2015Q2

REPORT INFORMATION
  Report Type: Spontaneous
  Country: US (occurrence: None)
  Receive Date: 20150611
  Receipt Date: 20150611
  Transmission Date: 20150821
  Serious: Yes (Death, Hospitalization)
  Sender: FDA-Public Use
  Company Number: None

PATIENT
  Age: 60 Year
  Sex: Female
  Weight: 76.6 kg

DRUGS (2)
  1. ERBITUX [Suspect]
     Active Substance: CETUXIMAB
     Dates: end: 20150501
  2. CAMPTOSAR [Suspect]
     Active Substance: IRINOTECAN HYDROCHLORIDE
     Dates: end: 20150501

REACTIONS (5)
  - Pericardial effusion [None]
  - Atrial fibrillation [None]
  - Acute respiratory failure [None]
  - Deep vein thrombosis [None]
  - Encephalopathy [None]

NARRATIVE: CASE EVENT DATE: 20150514
